FAERS Safety Report 21855035 (Version 1)
Quarter: 2023Q1

REPORT INFORMATION
  Report Type: Spontaneous
  Country: US (occurrence: None)
  Receive Date: 20230112
  Receipt Date: 20230112
  Transmission Date: 20230417
  Serious: No
  Sender: FDA-Public Use
  Company Number: None

PATIENT
  Age: 45 Year
  Sex: Male
  Weight: 85.5 kg

DRUGS (2)
  1. UP AND UP ALLERGY RELIEF (CETIRIZINE HYDROCHLORIDE) [Suspect]
     Active Substance: CETIRIZINE HYDROCHLORIDE
     Indication: Hypersensitivity
     Dosage: OTHER QUANTITY : 1 CAPSULE(S);?FREQUENCY : DAILY;?
     Route: 048
     Dates: start: 20150301, end: 20230107
  2. DAILY MULTIVITAMIN [Concomitant]

REACTIONS (5)
  - Pruritus [None]
  - Skin disorder [None]
  - Skin haemorrhage [None]
  - Scratch [None]
  - Therapy cessation [None]

NARRATIVE: CASE EVENT DATE: 20230107
